FAERS Safety Report 5888183-8 (Version None)
Quarter: 2008Q3

REPORT INFORMATION
  Report Type: 
  Country: None (occurrence: None)
  Receive Date: 20080918
  Receipt Date: 20080904
  Transmission Date: 20090109
  Serious: Yes (Hospitalization, Other)
  Sender: FDA-Public Use
  Company Number: JP-AVENTIS-200818733GDDC

PATIENT
  Age: 89 Year
  Sex: Male

DRUGS (9)
  1. GLYBURIDE [Suspect]
  2. CLARITHROMYCIN [Suspect]
  3. AMOXICILLIN [Concomitant]
  4. OMEPRAZOLE [Concomitant]
  5. LEUPROLIDE ACETATE [Concomitant]
  6. CITALOPRAM HYDROBROMIDE [Concomitant]
  7. DOXAZOSIN MESYLATE [Concomitant]
  8. ATENOLOL [Concomitant]
  9. AMILORIDE HCL AND HYDROCHLOROTHIAZIDE [Concomitant]

REACTIONS (6)
  - BLOOD SODIUM DECREASED [None]
  - DRUG INTERACTION [None]
  - DUODENAL ULCER [None]
  - HELICOBACTER INFECTION [None]
  - HYPOGLYCAEMIA [None]
  - LEUKOCYTOSIS [None]
